FAERS Safety Report 11017857 (Version 2)
Quarter: 2015Q2

REPORT INFORMATION
  Report Type: Spontaneous
  Country: US (occurrence: US)
  Receive Date: 20150412
  Receipt Date: 20150525
  Transmission Date: 20150821
  Serious: No
  Sender: FDA-Public Use
  Company Number: US-JNJFOC-20130713775

PATIENT
  Age: 25 Year
  Sex: Female
  Weight: 58.97 kg

DRUGS (2)
  1. SOLODYN [Concomitant]
     Active Substance: MINOCYCLINE HYDROCHLORIDE
     Indication: ACNE
     Route: 048
     Dates: start: 201306
  2. ORTHO EVRA [Suspect]
     Active Substance: ETHINYL ESTRADIOL\NORELGESTROMIN
     Indication: CONTRACEPTION
     Dosage: 1/ 3 IN 4 WEEKS
     Route: 062
     Dates: start: 20130707

REACTIONS (5)
  - Inappropriate schedule of drug administration [Recovered/Resolved]
  - Vaginal haemorrhage [Unknown]
  - Drug administered at inappropriate site [Recovered/Resolved]
  - Product quality issue [Unknown]
  - Menstrual disorder [Not Recovered/Not Resolved]

NARRATIVE: CASE EVENT DATE: 201307
